FAERS Safety Report 19660222 (Version 1)
Quarter: 2021Q3

REPORT INFORMATION
  Report Type: Report from Study
  Country: SE (occurrence: SE)
  Receive Date: 20210805
  Receipt Date: 20210805
  Transmission Date: 20211014
  Serious: Yes (Other)
  Sender: FDA-Public Use
  Company Number: SE-JNJFOC-20190716274

PATIENT

DRUGS (2)
  1. ADALIMUMAB [Suspect]
     Active Substance: ADALIMUMAB
     Indication: INFLAMMATORY BOWEL DISEASE
     Route: 065
  2. REMICADE [Suspect]
     Active Substance: INFLIXIMAB
     Indication: INFLAMMATORY BOWEL DISEASE
     Route: 042

REACTIONS (11)
  - Hepatotoxicity [Unknown]
  - Arthralgia [Unknown]
  - Viral infection [Unknown]
  - Adverse drug reaction [Unknown]
  - Bacterial infection [Unknown]
  - Therapeutic response decreased [Unknown]
  - Arthritis [Unknown]
  - Skin disorder [Unknown]
  - Neoplasm malignant [Unknown]
  - Paraesthesia [Unknown]
  - Infusion related reaction [Unknown]
